FAERS Safety Report 20088913 (Version 2)
Quarter: 2021Q4

REPORT INFORMATION
  Report Type: Report from Study
  Country: None (occurrence: CN)
  Receive Date: 20211119
  Receipt Date: 20211215
  Transmission Date: 20220303
  Serious: Yes (Hospitalization)
  Sender: FDA-Public Use
  Company Number: CN-Jiangsu Hengrui Medicine Co., Ltd.-2122052

PATIENT
  Age: 58 Year
  Sex: Female
  Weight: 55 kg

DRUGS (7)
  1. DOCETAXEL [Suspect]
     Active Substance: DOCETAXEL
     Indication: Invasive lobular breast carcinoma
     Route: 041
     Dates: start: 20210920, end: 20211102
  2. PYROTINIB [Suspect]
     Active Substance: PYROTINIB
     Route: 048
     Dates: start: 20210920, end: 20211106
  3. TRASTUZUMAB [Suspect]
     Active Substance: TRASTUZUMAB
     Route: 041
     Dates: start: 20210920, end: 20211102
  4. FENOFIBRATE [Concomitant]
     Active Substance: FENOFIBRATE
     Route: 048
     Dates: start: 20210915
  5. Nifedipine Sustained-release Tablets [Concomitant]
     Route: 048
     Dates: start: 20210916
  6. CARVEDILOL [Concomitant]
     Active Substance: CARVEDILOL
     Route: 048
     Dates: start: 20210916
  7. Loperamide Hydrochlo-ride Capsules [Concomitant]
     Route: 048
     Dates: start: 20211104, end: 20211108

REACTIONS (1)
  - Gastritis [Recovered/Resolved]

NARRATIVE: CASE EVENT DATE: 20211108
